FAERS Safety Report 6936880-5 (Version None)
Quarter: 2010Q3

REPORT INFORMATION
  Report Type: 
  Country: None (occurrence: None)
  Receive Date: 20100823
  Receipt Date: 20100812
  Transmission Date: 20110219
  Serious: Yes (Other)
  Sender: FDA-Public Use
  Company Number: CA-JNJFOC-20100804769

PATIENT
  Sex: Female
  Weight: 51 kg

DRUGS (8)
  1. REMICADE [Suspect]
     Indication: RHEUMATOID ARTHRITIS
     Route: 042
  2. NITRO-DUR [Concomitant]
  3. DIOVAN HCT [Concomitant]
     Dosage: 160/25
  4. CADUET [Concomitant]
     Dosage: 5/40
  5. NITRO SPRAY [Concomitant]
  6. ASPIRIN [Concomitant]
  7. METFORMIN [Concomitant]
  8. APO-K [Concomitant]

REACTIONS (2)
  - INFECTION [None]
  - SKIN CHAPPED [None]
